FAERS Safety Report 5814658-3 (Version None)
Quarter: 2008Q3

REPORT INFORMATION
  Report Type: 
  Country: None (occurrence: None)
  Receive Date: 20080718
  Receipt Date: 20080115
  Transmission Date: 20090109
  Serious: No
  Sender: FDA-Public Use
  Company Number: US-KINGPHARMUSA00001-K200800049

PATIENT

DRUGS (5)
  1. LEVOXYL [Suspect]
     Dosage: 88 MCG, UNK
     Dates: start: 20070601
  2. LEVOXYL [Suspect]
     Dosage: 50 MCG, UNK
  3. LEVOXYL [Suspect]
     Dosage: 25 MCG, UNK
  4. DIOVAN /01319601/ [Concomitant]
  5. SUPPLEMENTS [Concomitant]

REACTIONS (6)
  - ABDOMINAL DISTENSION [None]
  - ASTHENIA [None]
  - CONSTIPATION [None]
  - FATIGUE [None]
  - HYPERTHYROIDISM [None]
  - HYPOTHYROIDISM [None]
